FAERS Safety Report 4615088-2 (Version None)
Quarter: 2005Q1

REPORT INFORMATION
  Report Type: 
  Country: None (occurrence: None)
  Receive Date: 20050318
  Receipt Date: 20050318
  Transmission Date: 20050727
  Serious: Yes (Hospitalization)
  Sender: FDA-Public Use
  Company Number: None

PATIENT
  Sex: Male
  Weight: 73.4827 kg

DRUGS (3)
  1. AMOXICILLIN [Suspect]
     Indication: TOOTH DISORDER
     Dosage: 2 G PO X 1 DOSE
     Route: 048
     Dates: start: 20041007
  2. COUMADIN [Concomitant]
  3. LANOXIN [Concomitant]

REACTIONS (2)
  - DYSPNOEA [None]
  - PRURITUS [None]
